FAERS Safety Report 13515625 (Version 1)
Quarter: 2017Q2

REPORT INFORMATION
  Report Type: Spontaneous
  Country: US (occurrence: US)
  Receive Date: 20170504
  Receipt Date: 20170504
  Transmission Date: 20170830
  Serious: Yes (Other)
  Sender: FDA-Public Use
  Company Number: US-BAXALTA-2017BLT003700

PATIENT
  Age: 73 Year
  Sex: Female
  Weight: 54 kg

DRUGS (3)
  1. GAMMAGARD LIQUID [Suspect]
     Active Substance: HUMAN IMMUNOGLOBULIN G
     Indication: DERMATOMYOSITIS
     Dosage: 2G/KG 4 DAYS IN A ROW MONTHLY
     Route: 042
     Dates: start: 20160404
  2. GAMMAGARD LIQUID [Suspect]
     Active Substance: HUMAN IMMUNOGLOBULIN G
     Indication: OFF LABEL USE
  3. DEXAMETHASONE. [Concomitant]
     Active Substance: DEXAMETHASONE
     Indication: PROPHYLAXIS
     Dosage: WITH GGL INFUSIONS
     Route: 047

REACTIONS (5)
  - Vision blurred [Not Recovered/Not Resolved]
  - Conjunctivitis [Recovered/Resolved]
  - Ocular hyperaemia [Not Recovered/Not Resolved]
  - Eye inflammation [Not Recovered/Not Resolved]
  - Cellulitis orbital [Recovering/Resolving]

NARRATIVE: CASE EVENT DATE: 201607
